FAERS Safety Report 4408493-0 (Version None)
Quarter: 2004Q3

REPORT INFORMATION
  Report Type: 
  Country: None (occurrence: None)
  Receive Date: 20040721
  Receipt Date: 20040609
  Transmission Date: 20050211
  Serious: Yes (Disabling)
  Sender: FDA-Public Use
  Company Number: SAGL-ZLB/04/04/UNK

PATIENT
  Age: 75 Year
  Sex: Male
  Weight: 69.4 kg

DRUGS (4)
  1. SANDOGLOBULIN [Suspect]
     Indication: PERIPHERAL SENSORY NEUROPATHY
     Dosage: 30 G, I.V.
     Route: 042
     Dates: start: 20040119, end: 20040123
  2. ASPIRIN [Concomitant]
  3. THIAMINE (THIAMINE) [Concomitant]
  4. TIOTROPIN [Concomitant]

REACTIONS (3)
  - CHILLS [None]
  - HAEMATURIA [None]
  - URINARY TRACT INFECTION STAPHYLOCOCCAL [None]
